FAERS Safety Report 4349077-2 (Version None)
Quarter: 2004Q2

REPORT INFORMATION
  Report Type: 
  Country: None (occurrence: None)
  Receive Date: 20040427
  Receipt Date: 20040427
  Transmission Date: 20050107
  Serious: Yes (Life-Threatening)
  Sender: FDA-Public Use
  Company Number: None

PATIENT
  Age: 54 Year
  Sex: Male
  Weight: 105.2345 kg

DRUGS (13)
  1. INSPRA [Suspect]
     Indication: HYPERTENSION
     Dosage: 50 MG PO QD
     Route: 048
     Dates: start: 20040402, end: 20040417
  2. LOTENSIN [Concomitant]
  3. BUMETANIDE [Concomitant]
  4. MINOXIDIL [Concomitant]
  5. CATAPRES [Concomitant]
  6. METOPROLOL SUCCINATE [Concomitant]
  7. DIOVAN [Concomitant]
  8. DOXAZOSIN [Concomitant]
  9. FLUOXETINE [Concomitant]
  10. METFORMIN HCL [Concomitant]
  11. GLYBURIDE [Concomitant]
  12. PROTONIX [Concomitant]
  13. PROBENECID [Concomitant]

REACTIONS (7)
  - ABDOMINAL DISCOMFORT [None]
  - ABDOMINAL DISTENSION [None]
  - ASCITES [None]
  - DYSPNOEA [None]
  - HEPATOMEGALY [None]
  - VENOUS PRESSURE JUGULAR ABNORMAL [None]
  - WEIGHT DECREASED [None]
